FAERS Safety Report 18600660 (Version 2)
Quarter: 2020Q4

REPORT INFORMATION
  Report Type: Other
  Country: US (occurrence: US)
  Receive Date: 20201210
  Receipt Date: 20201216
  Transmission Date: 20210114
  Serious: Yes (Hospitalization, Other)
  Sender: FDA-Public Use
  Company Number: US-ROCHE-2725806

PATIENT
  Age: 78 Year
  Sex: Male

DRUGS (1)
  1. TECENTRIQ [Suspect]
     Active Substance: ATEZOLIZUMAB
     Indication: LUNG NEOPLASM MALIGNANT
     Route: 042
     Dates: start: 201911

REACTIONS (17)
  - Contusion [Unknown]
  - Blister [Unknown]
  - Fall [Unknown]
  - Laziness [Not Recovered/Not Resolved]
  - Bladder disorder [Not Recovered/Not Resolved]
  - Muscle atrophy [Not Recovered/Not Resolved]
  - Asthenia [Not Recovered/Not Resolved]
  - Sternal injury [Unknown]
  - Decreased activity [Not Recovered/Not Resolved]
  - Magnetic resonance imaging brain abnormal [Recovering/Resolving]
  - Diarrhoea [Unknown]
  - Skin exfoliation [Not Recovered/Not Resolved]
  - Haemoglobin decreased [Unknown]
  - Dehydration [Unknown]
  - Head injury [Unknown]
  - Impaired driving ability [Not Recovered/Not Resolved]
  - Gait inability [Not Recovered/Not Resolved]

NARRATIVE: CASE EVENT DATE: 201911
